FAERS Safety Report 7510832-9 (Version None)
Quarter: 2011Q2

REPORT INFORMATION
  Report Type: 
  Country: None (occurrence: None)
  Receive Date: 20110531
  Receipt Date: 20110523
  Transmission Date: 20111010
  Serious: No
  Sender: FDA-Public Use
  Company Number: US-BIOGENIDEC-2011BI009890

PATIENT
  Age: 49 Year
  Sex: Female

DRUGS (1)
  1. TYSABRI [Suspect]
     Indication: MULTIPLE SCLEROSIS
     Route: 042
     Dates: start: 20080320, end: 20110308

REACTIONS (6)
  - ABNORMAL SENSATION IN EYE [None]
  - CHILLS [None]
  - VISION BLURRED [None]
  - DIZZINESS [None]
  - INTRAOCULAR PRESSURE INCREASED [None]
  - BLINDNESS TRANSIENT [None]
